FAERS Safety Report 9262809 (Version 3)
Quarter: 2014Q1

REPORT INFORMATION
  Report Type: Report from Study
  Country: US (occurrence: US)
  Receive Date: 20130430
  Receipt Date: 20140213
  Transmission Date: 20141002
  Serious: Yes (Other)
  Sender: FDA-Public Use
  Company Number: PHHY2013US042149

PATIENT
  Age: 53 Year
  Sex: Female

DRUGS (13)
  1. GILENYA [Suspect]
     Indication: MULTIPLE SCLEROSIS
     Dosage: 0.5 MG, QD
     Route: 048
     Dates: start: 20110519, end: 201302
  2. ESCITALOPRAM OXALATE [Concomitant]
     Dosage: 10 MG, QD
     Route: 048
  3. ERGOCALCIFEROL [Concomitant]
     Dosage: 5000 U, UNK
     Route: 065
  4. AMPYRA [Concomitant]
     Dosage: 10 MG, BID
  5. LEXAPRO [Concomitant]
     Dosage: 10 MG, QD
  6. CIPRO [Concomitant]
     Dosage: 500 MG, BID
  7. CYANOCOBALAMIN [Concomitant]
     Dosage: 1000 UG/ML, UNK
  8. CILOSTAZOL [Concomitant]
     Dosage: 100 MG, BID
  9. BACLOFEN [Concomitant]
     Dosage: 10 MG, TID
  10. ADDERALL [Concomitant]
     Dosage: 30 MG, QD
  11. TOPAMAX [Concomitant]
     Dosage: 200 MG, BID
  12. GABAPENTIN [Concomitant]
     Dosage: 800 MG, UNK
  13. TRAZODONE HCL [Concomitant]
     Dosage: 100 MG, BID

REACTIONS (6)
  - Asthma [Not Recovered/Not Resolved]
  - Pneumonia [Not Recovered/Not Resolved]
  - Bronchitis [Not Recovered/Not Resolved]
  - Urinary tract infection [Not Recovered/Not Resolved]
  - Upper respiratory tract infection [Recovered/Resolved]
  - Nasopharyngitis [Unknown]
